FAERS Safety Report 12342707 (Version 1)
Quarter: 2016Q2

REPORT INFORMATION
  Report Type: Spontaneous
  Country: US (occurrence: US)
  Receive Date: 20160506
  Receipt Date: 20160506
  Transmission Date: 20160815
  Serious: No
  Sender: FDA-Public Use
  Company Number: US-BAYER-2016-083139

PATIENT
  Age: 10 Year
  Sex: Male

DRUGS (4)
  1. LOTRIMIN ULTRA ANTIFUNGAL [Suspect]
     Active Substance: BUTENAFINE HYDROCHLORIDE
     Indication: SKIN IRRITATION
     Dosage: UNK, UNK (TO BE PLACED ON THE DERMIS)
     Route: 061
  2. TENEX [Concomitant]
     Active Substance: GUANFACINE HYDROCHLORIDE
     Dosage: UNK
  3. CONCERTA [Concomitant]
     Active Substance: METHYLPHENIDATE HYDROCHLORIDE
     Dosage: UNK
  4. LAMICTAL [Concomitant]
     Active Substance: LAMOTRIGINE
     Dosage: UNK

REACTIONS (2)
  - Accidental exposure to product by child [None]
  - Expired product administered [None]

NARRATIVE: CASE EVENT DATE: 20160427
